FAERS Safety Report 6941080-9 (Version None)
Quarter: 2010Q3

REPORT INFORMATION
  Report Type: 
  Country: None (occurrence: None)
  Receive Date: 20100825
  Receipt Date: 20100820
  Transmission Date: 20110219
  Serious: Yes (Hospitalization)
  Sender: FDA-Public Use
  Company Number: US-BRISTOL-MYERS SQUIBB COMPANY-15249550

PATIENT
  Age: 57 Year
  Sex: Female
  Weight: 60 kg

DRUGS (4)
  1. ERBITUX [Suspect]
     Indication: NON-SMALL CELL LUNG CANCER
     Dosage: REMOVED FROM STUDY ON 02-AUG-2010
     Dates: start: 20100419, end: 20100706
  2. CARBOPLATIN [Suspect]
     Indication: NON-SMALL CELL LUNG CANCER
     Dosage: REMOVED FROM STUDY ON 02-AUG-2010
     Dates: start: 20100419, end: 20100706
  3. TAXOL [Suspect]
     Indication: NON-SMALL CELL LUNG CANCER
     Dosage: REMOVED FROM STUDY ON 02-AUG-2010
     Dates: start: 20100419, end: 20100706
  4. RADIATION THERAPY [Suspect]
     Indication: NON-SMALL CELL LUNG CANCER
     Dosage: 1DF:74GY,FRACTION:37
     Dates: start: 20100419, end: 20100617

REACTIONS (4)
  - FAILURE TO THRIVE [None]
  - NAUSEA [None]
  - OESOPHAGEAL STENOSIS [None]
  - VOMITING [None]
